FAERS Safety Report 8544623-7 (Version None)
Quarter: 2012Q3

REPORT INFORMATION
  Report Type: 
  Country: None (occurrence: None)
  Receive Date: 20120727
  Receipt Date: 20120720
  Transmission Date: 20120928
  Serious: Yes (Death, Hospitalization)
  Sender: FDA-Public Use
  Company Number: DK-ROCHE-1058608

PATIENT
  Sex: Male
  Weight: 71 kg

DRUGS (7)
  1. ACTEMRA [Suspect]
     Dates: start: 20111103
  2. METHOTREXATE [Suspect]
     Indication: RHEUMATOID ARTHRITIS
     Dosage: BEHANDLING STOPPET PGA. MORS, DRUG REPORTED AS EMTHEXATE, CUMULATIVE DOSE 7776.51785
     Route: 048
     Dates: start: 20020404
  3. ACTEMRA [Suspect]
     Indication: RHEUMATOID ARTHRITIS
     Dosage: STARTDOSIS 8 MG/KG.
     Route: 042
     Dates: start: 20100827, end: 20120223
  4. PREDNISOLONE [Suspect]
     Indication: RHEUMATOID ARTHRITIS
     Dosage: BEHANDLING STOPPET PGA. MORS, CUMULATIVE DOSE 27217.8125
     Route: 048
     Dates: start: 20020404
  5. ACTEMRA [Suspect]
     Dates: start: 20111130
  6. ACTEMRA [Suspect]
     Dates: start: 20120111
  7. ACTEMRA [Suspect]
     Dates: start: 20120223

REACTIONS (7)
  - CARDIOGENIC SHOCK [None]
  - PNEUMONIA [None]
  - PLEURAL EFFUSION [None]
  - DISSEMINATED INTRAVASCULAR COAGULATION [None]
  - ACUTE MYOCARDIAL INFARCTION [None]
  - STAPHYLOCOCCAL SEPSIS [None]
  - CARDIAC FAILURE [None]
